FAERS Safety Report 10159727 (Version 3)
Quarter: 2014Q2

REPORT INFORMATION
  Report Type: Spontaneous
  Country: US (occurrence: US)
  Receive Date: 20140508
  Receipt Date: 20140520
  Transmission Date: 20141212
  Serious: Yes (Death)
  Sender: FDA-Public Use
  Company Number: US-MERCK-1405USA003624

PATIENT
  Age: 72 Year
  Sex: Male

DRUGS (1)
  1. NOXAFIL [Suspect]
     Dosage: SUSTAINED ACTION TABLET, UNK
     Route: 048
     Dates: start: 2012

REACTIONS (1)
  - Pneumonia [Fatal]
